FAERS Safety Report 7203180-8 (Version None)
Quarter: 2010Q4

REPORT INFORMATION
  Report Type: 
  Country: None (occurrence: None)
  Receive Date: 20101230
  Receipt Date: 20101217
  Transmission Date: 20110411
  Serious: Yes (Hospitalization)
  Sender: FDA-Public Use
  Company Number: FR-BIOGENIDEC-2010BI041566

PATIENT
  Age: 39 Year
  Sex: Female
  Weight: 95 kg

DRUGS (5)
  1. TYSABRI [Suspect]
     Indication: MULTIPLE SCLEROSIS
     Route: 042
     Dates: start: 20080423
  2. GABAPENTINE [Concomitant]
     Indication: NEURALGIA
     Dates: start: 20090601
  3. ALFUZOSINE [Concomitant]
     Indication: BLADDER DYSFUNCTION
     Dates: start: 20090327
  4. TRAMADOL HCL [Concomitant]
     Indication: SCIATICA
     Dates: start: 20100930
  5. KETOPROFEN [Concomitant]
     Dates: start: 20100930

REACTIONS (1)
  - INTERVERTEBRAL DISC PROTRUSION [None]
